FAERS Safety Report 9462075 (Version 1)
Quarter: 2013Q3

REPORT INFORMATION
  Report Type: Spontaneous
  Country: US (occurrence: None)
  Receive Date: 20130815
  Receipt Date: 20130815
  Transmission Date: 20140515
  Serious: Yes (Hospitalization)
  Sender: FDA-Public Use
  Company Number: None

PATIENT
  Sex: Male
  Weight: 100.3 kg

DRUGS (11)
  1. BRILINTA [Suspect]
     Route: 048
  2. ASPIRIN [Suspect]
     Route: 048
  3. ALEVE [Suspect]
  4. CHOLECALCIFEROL [Concomitant]
  5. MVI [Concomitant]
  6. IMITREX [Concomitant]
  7. RAMPIPRIL [Concomitant]
  8. CRESTOR [Concomitant]
  9. TRICOR [Concomitant]
  10. CYANOCOBALAMIN [Concomitant]
  11. NTC [Concomitant]

REACTIONS (5)
  - Faeces discoloured [None]
  - Melaena [None]
  - Upper gastrointestinal haemorrhage [None]
  - Anaemia [None]
  - Anastomotic ulcer [None]
